FAERS Safety Report 6278436-6 (Version None)
Quarter: 2009Q3

REPORT INFORMATION
  Report Type: 
  Country: None (occurrence: None)
  Receive Date: 20090721
  Receipt Date: 20090710
  Transmission Date: 20100115
  Serious: Yes (Hospitalization)
  Sender: FDA-Public Use
  Company Number: 2009AL004588

PATIENT
  Age: 55 Year
  Sex: Female

DRUGS (5)
  1. TRAMADOL HYDROCHLORIDE [Suspect]
     Indication: PAIN
     Dosage: 50 MG; PO
     Route: 048
     Dates: start: 20090604
  2. PARACETAMOL [Concomitant]
  3. IBUPROFEN [Concomitant]
  4. TINZAPARIN [Concomitant]
  5. CYCLIZINE [Concomitant]

REACTIONS (3)
  - GENERALISED ERYTHEMA [None]
  - LIP SWELLING [None]
  - RASH PRURITIC [None]
